FAERS Safety Report 6076161-8 (Version None)
Quarter: 2009Q1

REPORT INFORMATION
  Report Type: 
  Country: None (occurrence: None)
  Receive Date: 20090212
  Receipt Date: 20090206
  Transmission Date: 20090719
  Serious: No
  Sender: FDA-Public Use
  Company Number: US-B.I. PHARMACEUTICALS,INC./RIDGEFIELD-2009-BP-01602BP

PATIENT
  Sex: Female

DRUGS (4)
  1. COMBIVENT [Suspect]
     Indication: EMPHYSEMA
     Dosage: 8PUF
     Route: 055
     Dates: start: 20030101
  2. CETIRIZINE [Concomitant]
     Indication: MULTIPLE ALLERGIES
  3. SEROQUEL [Concomitant]
     Indication: INSOMNIA
  4. CHEMO [Concomitant]
     Indication: OVARIAN CANCER

REACTIONS (5)
  - DROOLING [None]
  - DRUG DEPENDENCE [None]
  - DYSPEPSIA [None]
  - DYSPNOEA [None]
  - RHINORRHOEA [None]
